FAERS Safety Report 9306871 (Version 1)
Quarter: 2013Q1

REPORT INFORMATION
  Report Type: Spontaneous
  Country: US (occurrence: None)
  Receive Date: 20130313
  Receipt Date: 20130313
  Transmission Date: 20140127
  Serious: Yes (Hospitalization)
  Sender: FDA-Public Use
  Company Number: 2012-644

PATIENT
  Age: 50 Year
  Sex: Male

DRUGS (8)
  1. PRIALT (ZICONOTIDE) INTRATHECAL INFUSION [Suspect]
     Indication: PAIN
     Route: 037
  2. PRIALT (ZICONOTIDE) INTRATHECAL INFUSION [Suspect]
     Indication: POST LAMINECTOMY SYNDROME
     Route: 037
  3. CLONIDINE [Suspect]
     Indication: PAIN
     Route: 037
  4. CLONIDINE [Suspect]
     Indication: POST LAMINECTOMY SYNDROME
     Route: 037
  5. DILAUDID (HYDROMORPHONE HYDROCHLORIDE) INJECTION [Suspect]
     Indication: PAIN
     Route: 037
  6. DILAUDID (HYDROMORPHONE HYDROCHLORIDE) INJECTION [Suspect]
     Indication: POST LAMINECTOMY SYNDROME
     Route: 037
  7. BUPIVACAINE HYDROCHLORIDE [Suspect]
     Indication: PAIN
     Route: 037
  8. BUPIVACAINE HYDROCHLORIDE [Suspect]
     Indication: POST LAMINECTOMY SYNDROME
     Route: 037

REACTIONS (4)
  - Blood pressure decreased [None]
  - Bradycardia [None]
  - Overdose [None]
  - Musculoskeletal disorder [None]
